FAERS Safety Report 20652367 (Version 1)
Quarter: 2022Q1

REPORT INFORMATION
  Report Type: Report from Study
  Country: BR (occurrence: BR)
  Receive Date: 20220330
  Receipt Date: 20220330
  Transmission Date: 20220423
  Serious: Yes (Other)
  Sender: FDA-Public Use
  Company Number: BR-JNJFOC-20220360733

PATIENT
  Age: 6 Decade
  Sex: Female
  Weight: 71 kg

DRUGS (5)
  1. SIMPONI [Suspect]
     Active Substance: GOLIMUMAB
     Indication: Psoriatic arthropathy
     Route: 058
     Dates: start: 20210301
  2. SIMPONI [Suspect]
     Active Substance: GOLIMUMAB
     Route: 058
     Dates: start: 20210512
  3. METHOTREXATE [Concomitant]
     Active Substance: METHOTREXATE
  4. FOLIFOLIN [Concomitant]
  5. TRAMADOL [Concomitant]
     Active Substance: TRAMADOL

REACTIONS (2)
  - Psoriatic arthropathy [Not Recovered/Not Resolved]
  - Ocular neoplasm [Unknown]
